FAERS Safety Report 21526874 (Version 2)
Quarter: 2023Q1

REPORT INFORMATION
  Report Type: Spontaneous
  Country: US (occurrence: US)
  Receive Date: 20221031
  Receipt Date: 20230103
  Transmission Date: 20230418
  Serious: No
  Sender: FDA-Public Use
  Company Number: US-GSKCCFUS-Case-01541020_AE-87267

PATIENT
  Sex: Female

DRUGS (1)
  1. NUCALA [Suspect]
     Active Substance: MEPOLIZUMAB
     Indication: Asthma
     Dosage: 100 MG, Z, ONCE A MONTH

REACTIONS (4)
  - Limb injury [Unknown]
  - Rotator cuff syndrome [Unknown]
  - Nerve injury [Unknown]
  - Product storage error [Unknown]
